FAERS Safety Report 24347089 (Version 2)
Quarter: 2024Q3

REPORT INFORMATION
  Report Type: Spontaneous
  Country: US (occurrence: US)
  Receive Date: 20240921
  Receipt Date: 20240923
  Transmission Date: 20241016
  Serious: No
  Sender: BAYER
  Company Number: US-BAYER-2024A132371

PATIENT
  Age: 78 Year
  Sex: Female

DRUGS (1)
  1. CLIMARA PRO [Suspect]
     Active Substance: ESTRADIOL\LEVONORGESTREL
     Indication: Hormone therapy
     Dosage: .045/.015
     Route: 062
     Dates: end: 20240916

REACTIONS (2)
  - Device adhesion issue [None]
  - Application site rash [Not Recovered/Not Resolved]
